FAERS Safety Report 11159539 (Version 1)
Quarter: 2015Q2

REPORT INFORMATION
  Report Type: Spontaneous
  Country: US (occurrence: None)
  Receive Date: 20150602
  Receipt Date: 20150602
  Transmission Date: 20150821
  Serious: No
  Sender: FDA-Public Use
  Company Number: None

PATIENT
  Age: 66 Year
  Sex: Female
  Weight: 61.24 kg

DRUGS (12)
  1. NEXIUM [Concomitant]
     Active Substance: ESOMEPRAZOLE MAGNESIUM
  2. PREDNISONE. [Concomitant]
     Active Substance: PREDNISONE
  3. METAPROLOL [Concomitant]
  4. ALPRAZOLAM. [Concomitant]
     Active Substance: ALPRAZOLAM
  5. TACROLIMUS. [Concomitant]
     Active Substance: TACROLIMUS
  6. ATORVASTATIN [Concomitant]
     Active Substance: ATORVASTATIN
  7. FOSAMAX [Concomitant]
     Active Substance: ALENDRONATE SODIUM
  8. CIPRO [Suspect]
     Active Substance: CIPROFLOXACIN HYDROCHLORIDE
     Indication: URINARY TRACT INFECTION
     Dosage: 2 X DAILY  TWICE DAILY TAKEN BY MOUTH
     Route: 048
     Dates: start: 20150522, end: 20150528
  9. MAGNESIUM [Concomitant]
     Active Substance: MAGNESIUM
  10. MYFORTIC [Concomitant]
     Active Substance: MYCOPHENOLATE SODIUM
  11. BIOTIN [Concomitant]
     Active Substance: BIOTIN
  12. VITAMIN D [Concomitant]
     Active Substance: CHOLECALCIFEROL

REACTIONS (6)
  - Pain in extremity [None]
  - Paraesthesia [None]
  - Nausea [None]
  - Muscular weakness [None]
  - Myalgia [None]
  - Arthralgia [None]

NARRATIVE: CASE EVENT DATE: 20150522
